FAERS Safety Report 7545047-1 (Version None)
Quarter: 2011Q2

REPORT INFORMATION
  Report Type: 
  Country: None (occurrence: None)
  Receive Date: 20110614
  Receipt Date: 20110203
  Transmission Date: 20111010
  Serious: Yes (Hospitalization, Other)
  Sender: FDA-Public Use
  Company Number: US-BAYER-201037530NA

PATIENT
  Age: 17 Year
  Sex: Female
  Weight: 78.912 kg

DRUGS (8)
  1. YAZ [Suspect]
     Indication: OLIGOMENORRHOEA
     Dosage: UNK UNK, UNK
     Route: 048
     Dates: start: 20070601, end: 20080301
  2. FAMOTIDINE [Concomitant]
     Indication: ABDOMINAL PAIN
     Dosage: 20 MG, QD
     Dates: start: 20080224
  3. ADDERALL XR 10 [Concomitant]
     Indication: ATTENTION DEFICIT/HYPERACTIVITY DISORDER
     Dosage: 30 MG, UNK
     Route: 048
  4. ADDERALL 10 [Concomitant]
     Indication: ATTENTION DEFICIT/HYPERACTIVITY DISORDER
     Dosage: 30 MG, QD
     Dates: start: 20070901, end: 20090201
  5. PEPCID [CALCIUM CARBONATE,FAMOTIDINE,MAGNESIUM HYDROXIDE] [Concomitant]
     Indication: GASTRITIS
     Dosage: 20 MG, UNK
  6. ZITHROMAX [Concomitant]
  7. ACETAMINOPHEN [Concomitant]
  8. GI COCKTAIL-WHITE [Concomitant]
     Indication: GASTRITIS

REACTIONS (3)
  - CHOLECYSTITIS CHRONIC [None]
  - CHOLELITHIASIS [None]
  - ABDOMINAL PAIN [None]
